FAERS Safety Report 6848204-2 (Version None)
Quarter: 2010Q3

REPORT INFORMATION
  Report Type: 
  Country: None (occurrence: None)
  Receive Date: 20100716
  Receipt Date: 20100715
  Transmission Date: 20110219
  Serious: Yes (Hospitalization)
  Sender: FDA-Public Use
  Company Number: B0665542A

PATIENT
  Sex: Female

DRUGS (1)
  1. AUGMENTIN '125' [Suspect]
     Indication: SINUSITIS
     Route: 048
     Dates: start: 20100422, end: 20100429

REACTIONS (6)
  - DIARRHOEA [None]
  - ENTEROCOLITIS INFECTIOUS [None]
  - HYPERTHERMIA [None]
  - MYOCARDITIS [None]
  - NAUSEA [None]
  - VOMITING [None]
